FAERS Safety Report 6325387-4 (Version None)
Quarter: 2009Q3

REPORT INFORMATION
  Report Type: 
  Country: None (occurrence: None)
  Receive Date: 20090824
  Receipt Date: 20090721
  Transmission Date: 20100115
  Serious: No
  Sender: FDA-Public Use
  Company Number: US-ABBOTT-09P-163-0586628-00

PATIENT
  Sex: Female
  Weight: 77.18 kg

DRUGS (8)
  1. NIASPAN [Suspect]
     Indication: LOW DENSITY LIPOPROTEIN INCREASED
     Dates: start: 20090701
  2. METFORMIN HCL [Concomitant]
     Indication: DRUG USE FOR UNKNOWN INDICATION
     Route: 048
  3. METOPROLOL [Concomitant]
     Indication: DRUG USE FOR UNKNOWN INDICATION
     Dosage: DAILY DOSE: 50 MILLIGRAMS
     Route: 048
  4. ASPIRIN [Concomitant]
     Indication: DRUG USE FOR UNKNOWN INDICATION
     Route: 048
  5. DIOVAN [Concomitant]
     Indication: DRUG USE FOR UNKNOWN INDICATION
     Dosage: DAILY DOSE: 160 MILLIGRAMS
     Route: 048
  6. CITALOPRAM [Concomitant]
     Indication: DRUG USE FOR UNKNOWN INDICATION
     Dosage: DAILY DOSE: 20 MILLIGRAMS
     Route: 048
  7. PANTOPRAZOLE SODIUM [Concomitant]
     Indication: DRUG USE FOR UNKNOWN INDICATION
     Dosage: DAILY DOSE: 40 MILLIGRAMS
     Route: 048
  8. LASIX [Concomitant]
     Indication: JOINT SWELLING
     Route: 048

REACTIONS (11)
  - ABDOMINAL DISCOMFORT [None]
  - BLOOD GLUCOSE INCREASED [None]
  - BLOOD PRESSURE DECREASED [None]
  - DIARRHOEA [None]
  - DIZZINESS [None]
  - FEELING JITTERY [None]
  - FLUSHING [None]
  - HEADACHE [None]
  - HEART RATE INCREASED [None]
  - INITIAL INSOMNIA [None]
  - NAUSEA [None]
